FAERS Safety Report 8846280 (Version 1)
Quarter: 2012Q4

REPORT INFORMATION
  Report Type: 
  Country: US (occurrence: US)
  Receive Date: 20121018
  Receipt Date: 20121018
  Transmission Date: 20130627
  Serious: Yes (Hospitalization, Other)
  Sender: FDA-Public Use
  Company Number: US-PAR PHARMACEUTICAL, INC-2012SCPR004662

PATIENT

DRUGS (1)
  1. CABERGOLINE [Suspect]
     Indication: PROLACTINOMA
     Dosage: UNK, Unknown
     Route: 065

REACTIONS (8)
  - Coronary artery dissection [Recovering/Resolving]
  - Acute myocardial infarction [Unknown]
  - Mitral valve incompetence [Unknown]
  - Coronary artery stenosis [Recovered/Resolved]
  - Arteriospasm coronary [Unknown]
  - Electrocardiogram ST segment elevation [Unknown]
  - global hypokinesia [Recovering/Resolving]
  - Ejection fraction decreased [Recovering/Resolving]
